FAERS Safety Report 25500543 (Version 1)
Quarter: 2025Q3

REPORT INFORMATION
  Report Type: Report from Study
  Country: MX (occurrence: MX)
  Receive Date: 20250701
  Receipt Date: 20250701
  Transmission Date: 20251020
  Serious: Yes (Hospitalization, Disabling, Other)
  Sender: ABBVIE
  Company Number: MX-ABBVIE-6349722

PATIENT
  Age: 71 Year
  Sex: Male
  Weight: 105 kg

DRUGS (1)
  1. RINVOQ [Suspect]
     Active Substance: UPADACITINIB
     Indication: Rheumatoid arthritis
     Dosage: 15 MILLIGRAM
     Route: 048
     Dates: start: 20210924, end: 202506

REACTIONS (8)
  - Spinal operation [Recovered/Resolved]
  - Rotator cuff repair [Recovering/Resolving]
  - Pneumonia [Recovered/Resolved]
  - Shoulder operation [Recovered/Resolved]
  - Tenoplasty [Recovering/Resolving]
  - Thyroidectomy [Unknown]
  - Herpes zoster [Recovered/Resolved]
  - Immunodeficiency [Unknown]

NARRATIVE: CASE EVENT DATE: 20241230
